FAERS Safety Report 18527845 (Version 3)
Quarter: 2022Q4

REPORT INFORMATION
  Report Type: Report from Study
  Country: CA (occurrence: CA)
  Receive Date: 20201120
  Receipt Date: 20221012
  Transmission Date: 20230112
  Serious: Yes (Other)
  Sender: FDA-Public Use
  Company Number: CA-JNJFOC-20201041803

PATIENT
  Age: 5 Year
  Sex: Female

DRUGS (3)
  1. REMICADE [Suspect]
     Active Substance: INFLIXIMAB
     Indication: Uveitis
     Dosage: ON 12-NOV-2020, PATIENT RECEIVED 100 MG 13TH INFLIXIMAB INFUSION
     Route: 041
     Dates: start: 20191220
  2. REMICADE [Suspect]
     Active Substance: INFLIXIMAB
     Indication: Juvenile idiopathic arthritis
     Route: 041
  3. REMICADE [Suspect]
     Active Substance: INFLIXIMAB
     Route: 041

REACTIONS (2)
  - Uveitis [Unknown]
  - Off label use [Unknown]

NARRATIVE: CASE EVENT DATE: 20191220
